FAERS Safety Report 9312334 (Version 3)
Quarter: 2013Q2

REPORT INFORMATION
  Report Type: Spontaneous
  Country: FR (occurrence: FR)
  Receive Date: 20130528
  Receipt Date: 20130625
  Transmission Date: 20140414
  Serious: Yes (Other)
  Sender: FDA-Public Use
  Company Number: FR-JNJFOC-20130510833

PATIENT
  Sex: Female
  Weight: 103 kg

DRUGS (5)
  1. XEPLION [Suspect]
     Indication: EMOTIONAL DISORDER
     Route: 030
     Dates: start: 20130417, end: 20130417
  2. XEPLION [Suspect]
     Indication: EMOTIONAL DISORDER
     Route: 030
     Dates: start: 20130320, end: 20130320
  3. XEPLION [Suspect]
     Indication: EMOTIONAL DISORDER
     Route: 030
     Dates: start: 20130220, end: 20130220
  4. TEMESTA [Concomitant]
     Indication: SLEEP DISORDER
     Route: 048
  5. THERALENE [Concomitant]
     Indication: SLEEP DISORDER
     Route: 048

REACTIONS (1)
  - Phlebitis [Unknown]
